FAERS Safety Report 4925006-5 (Version None)
Quarter: 2006Q1

REPORT INFORMATION
  Report Type: 
  Country: None (occurrence: None)
  Receive Date: 20060127
  Receipt Date: 20051224
  Transmission Date: 20060701
  Serious: Yes (Other)
  Sender: FDA-Public Use
  Company Number: 2006000987

PATIENT
  Age: 46 Year
  Sex: Male
  Weight: 99.7913 kg

DRUGS (9)
  1. LYRICA [Suspect]
     Indication: PAIN
     Dates: start: 20051201
  2. OXYCONTIN [Concomitant]
  3. HYDROCODONE BITARTRATE [Concomitant]
  4. VALIUM [Concomitant]
  5. CELEXA (DIAZEPAM) [Concomitant]
  6. CELEXA [Concomitant]
  7. TRAZODONE HCL [Concomitant]
  8. MAXALAT (RIZATRIPTAN BENZOATE) [Concomitant]
  9. MIRALAX [Concomitant]

REACTIONS (1)
  - VISION BLURRED [None]
